FAERS Safety Report 11938805 (Version 1)
Quarter: 2016Q1

REPORT INFORMATION
  Report Type: Spontaneous
  Country: US (occurrence: US)
  Receive Date: 20160122
  Receipt Date: 20160122
  Transmission Date: 20160526
  Serious: No
  Sender: FDA-Public Use
  Company Number: US-009507513-1601USA006949

PATIENT
  Sex: Female

DRUGS (3)
  1. DULERA [Suspect]
     Active Substance: FORMOTEROL FUMARATE DIHYDRATE\MOMETASONE FUROATE
     Indication: ASTHMA
     Dosage: 1 PUFF, TWICE DAILY
     Route: 055
     Dates: start: 2013
  2. SINGULAIR [Concomitant]
     Active Substance: MONTELUKAST SODIUM
  3. ALBUTEROL SULFATE. [Concomitant]
     Active Substance: ALBUTEROL SULFATE

REACTIONS (4)
  - Product quality issue [Unknown]
  - Dyspnoea [Recovered/Resolved]
  - Feeling abnormal [Recovered/Resolved]
  - Chest discomfort [Recovered/Resolved]
